FAERS Safety Report 5464441-6 (Version None)
Quarter: 2007Q3

REPORT INFORMATION
  Report Type: 
  Country: None (occurrence: None)
  Receive Date: 20070921
  Receipt Date: 20070910
  Transmission Date: 20080115
  Serious: Yes (Other)
  Sender: FDA-Public Use
  Company Number: CH-ELI_LILLY_AND_COMPANY-CH200705006098

PATIENT
  Age: 39 Year
  Sex: Male

DRUGS (6)
  1. CYMBALTA [Suspect]
     Dosage: 90 MG, DAILY (1/D)
     Route: 048
     Dates: start: 20070414, end: 20070419
  2. CYMBALTA [Suspect]
     Dosage: 60 MG, DAILY (1/D)
     Route: 048
     Dates: start: 20070420, end: 20070422
  3. CYMBALTA [Suspect]
     Dosage: 90 MG, DAILY (1/D)
     Route: 048
     Dates: start: 20070423, end: 20070424
  4. CYMBALTA [Suspect]
     Dosage: 45 MG, DAILY (1/D)
     Route: 048
     Dates: start: 20070425, end: 20070426
  5. EFFEXOR [Concomitant]
     Dosage: 350 MG, DAILY (1/D)
  6. EFFEXOR [Concomitant]
     Dosage: 75 MG, DAILY (1/D)
     Route: 065
     Dates: start: 20070425, end: 20070502

REACTIONS (1)
  - AGGRESSION [None]
